FAERS Safety Report 8009916-0 (Version None)
Quarter: 2011Q4

REPORT INFORMATION
  Report Type: 
  Country: None (occurrence: None)
  Receive Date: 20111228
  Receipt Date: 20111215
  Transmission Date: 20120403
  Serious: Yes (Other)
  Sender: FDA-Public Use
  Company Number: PHEH2011US011253

PATIENT
  Sex: Female
  Weight: 64.7 kg

DRUGS (2)
  1. GLEEVEC [Suspect]
     Indication: CHRONIC MYELOID LEUKAEMIA
     Dates: start: 20091001
  2. GLEEVEC [Suspect]
     Dates: end: 20110901

REACTIONS (3)
  - DRUG INEFFECTIVE [None]
  - PANCYTOPENIA [None]
  - IRON DEFICIENCY ANAEMIA [None]
